FAERS Safety Report 17052147 (Version 1)
Quarter: 2019Q4

REPORT INFORMATION
  Report Type: Spontaneous
  Country: US (occurrence: US)
  Receive Date: 20191021
  Receipt Date: 20191021
  Transmission Date: 20200122
  Serious: Yes (Hospitalization)
  Sender: FDA-Public Use
  Company Number: None

PATIENT
  Age: 67 Year
  Sex: Female
  Weight: 91.4 kg

DRUGS (1)
  1. ASPIRIN. [Suspect]
     Active Substance: ASPIRIN
     Dates: end: 20170831

REACTIONS (4)
  - Chills [None]
  - Post procedural discharge [None]
  - Pain [None]
  - Pyrexia [None]

NARRATIVE: CASE EVENT DATE: 20170901
